FAERS Safety Report 7795987 (Version 4)
Quarter: 2022Q4

REPORT INFORMATION
  Report Type: Spontaneous
  Country: US (occurrence: US)
  Receive Date: 20110202
  Receipt Date: 20221118
  Transmission Date: 20230113
  Serious: Yes (Hospitalization, Other)
  Sender: FDA-Public Use
  Company Number: US-ROCHE-755939

PATIENT
  Age: 61 Year
  Sex: Female

DRUGS (5)
  1. BONIVA [Suspect]
     Active Substance: IBANDRONATE SODIUM
     Indication: Osteoporosis
     Route: 048
     Dates: start: 200608, end: 201001
  2. ACTONEL [Suspect]
     Active Substance: RISEDRONATE SODIUM
     Indication: Osteoporosis
     Route: 065
     Dates: start: 200508, end: 200608
  3. FOSAMAX [Suspect]
     Active Substance: ALENDRONATE SODIUM
     Indication: Osteoporosis
     Route: 048
     Dates: start: 200402, end: 200608
  4. CYCLOBENZAPRINE [Concomitant]
     Active Substance: CYCLOBENZAPRINE
     Indication: Pain
     Dates: start: 2005, end: 2010
  5. FORTEO [Concomitant]
     Active Substance: TERIPARATIDE
     Indication: Osteoporosis

REACTIONS (24)
  - Femur fracture [Unknown]
  - Low turnover osteopathy [Unknown]
  - Femur fracture [Unknown]
  - Anxiety [Unknown]
  - Emotional distress [Unknown]
  - Foot fracture [Unknown]
  - Ankle fracture [Unknown]
  - Wrist fracture [Unknown]
  - Pelvic fracture [Unknown]
  - Depression [Unknown]
  - Diverticulitis [Unknown]
  - Nephrolithiasis [Unknown]
  - Abdominal pain [Unknown]
  - Sinusitis [Unknown]
  - Back pain [Unknown]
  - Peripheral swelling [Unknown]
  - Dyspnoea [Unknown]
  - Chest pain [Unknown]
  - Presyncope [Unknown]
  - Chest discomfort [Unknown]
  - Fall [Unknown]
  - Asthenia [Unknown]
  - Fatigue [Unknown]
  - Pain in extremity [Unknown]

NARRATIVE: CASE EVENT DATE: 20050101
